FAERS Safety Report 7518548-X (Version None)
Quarter: 2011Q2

REPORT INFORMATION
  Report Type: 
  Country: None (occurrence: None)
  Receive Date: 20110601
  Receipt Date: 20110601
  Transmission Date: 20111010
  Serious: Yes (Other)
  Sender: FDA-Public Use
  Company Number: None

PATIENT
  Age: 25 Year
  Sex: Female
  Weight: 74.8435 kg

DRUGS (3)
  1. SINGULAIR [Suspect]
     Indication: SEASONAL ALLERGY
     Dosage: 10MG ONCE DAILY PO
     Route: 048
     Dates: start: 20100415, end: 20100515
  2. SINGULAIR [Suspect]
     Indication: ASTHMA
     Dosage: 10MG ONCE DAILY PO
     Route: 048
     Dates: start: 20100415, end: 20100515
  3. ALLESSE BIRTH CONTROL PILL [Concomitant]

REACTIONS (5)
  - IRRITABILITY [None]
  - AGITATION [None]
  - HALLUCINATION, VISUAL [None]
  - ANXIETY [None]
  - SUICIDAL IDEATION [None]
